FAERS Safety Report 17986738 (Version 1)
Quarter: 2020Q3

REPORT INFORMATION
  Report Type: Report from Study
  Country: US (occurrence: US)
  Receive Date: 20200706
  Receipt Date: 20200706
  Transmission Date: 20201103
  Serious: Yes (Hospitalization)
  Sender: FDA-Public Use
  Company Number: US-BEH-2020119508

PATIENT
  Age: 42 Year
  Sex: Female

DRUGS (1)
  1. HAEGARDA [Suspect]
     Active Substance: HUMAN C1-ESTERASE INHIBITOR
     Dosage: 6000
     Route: 065

REACTIONS (5)
  - Migraine [Unknown]
  - Swelling [Unknown]
  - No adverse event [Unknown]
  - Product administration error [Unknown]
  - Unevaluable event [Unknown]
